FAERS Safety Report 12267902 (Version 2)
Quarter: 2016Q2

REPORT INFORMATION
  Report Type: Spontaneous
  Country: US (occurrence: US)
  Receive Date: 20160414
  Receipt Date: 20160426
  Transmission Date: 20160815
  Serious: Yes (Life-Threatening, Other)
  Sender: FDA-Public Use
  Company Number: US-EMERGENT BIOSOLUTIONS-16BA00012SP

PATIENT

DRUGS (5)
  1. BAT [Suspect]
     Active Substance: EQUINE BOTULINUM NEUROTOXIN A/B/C/D/E/F/G IMMUNE FAB2
     Indication: BOTULISM
     Dosage: 18 ML, SINGLE
     Dates: start: 20160308
  2. VANCOMYCIN [Concomitant]
     Active Substance: VANCOMYCIN
     Indication: ABSCESS
     Dosage: 1000 MG, UNK
     Route: 042
     Dates: start: 20160307, end: 20160310
  3. PENICILIN G [Concomitant]
     Indication: BOTULISM
     Dosage: 4000000 UNIT, Q4HR
     Route: 042
     Dates: start: 20160308, end: 20160313
  4. METRONIDAZOLE. [Concomitant]
     Active Substance: METRONIDAZOLE
     Indication: BOTULISM
     Dosage: 500 MG, Q8H
     Route: 042
     Dates: start: 20160308, end: 20160308
  5. BAT [Suspect]
     Active Substance: EQUINE BOTULINUM NEUROTOXIN A/B/C/D/E/F/G IMMUNE FAB2
     Dosage: 18 ML, SINGLE
     Dates: start: 20160312

REACTIONS (2)
  - Acute kidney injury [Recovered/Resolved]
  - Haemodynamic instability [Recovered/Resolved]

NARRATIVE: CASE EVENT DATE: 20160309
